FAERS Safety Report 11130803 (Version 2)
Quarter: 2015Q2

REPORT INFORMATION
  Report Type: Spontaneous
  Country: CH (occurrence: CH)
  Receive Date: 20150522
  Receipt Date: 20150529
  Transmission Date: 20150821
  Serious: Yes (Life-Threatening, Other)
  Sender: FDA-Public Use
  Company Number: CH-SA-2015SA066348

PATIENT
  Age: 5 Year
  Sex: Female
  Weight: 18.5 kg

DRUGS (5)
  1. CLEMASTINE [Concomitant]
     Active Substance: CLEMASTINE
     Indication: DRUG INTOLERANCE
     Route: 042
     Dates: start: 20150424, end: 20150424
  2. DEXAMETHASONE. [Concomitant]
     Active Substance: DEXAMETHASONE
     Indication: DRUG INTOLERANCE
     Route: 042
     Dates: start: 20150424, end: 20150424
  3. MYOZYME [Suspect]
     Active Substance: ALGLUCOSIDASE ALFA
     Indication: GLYCOGEN STORAGE DISEASE TYPE II
     Route: 041
     Dates: start: 20150508, end: 20150508
  4. MYOZYME [Suspect]
     Active Substance: ALGLUCOSIDASE ALFA
     Indication: GLYCOGEN STORAGE DISEASE TYPE II
     Route: 041
     Dates: start: 20150424, end: 20150424
  5. MYOZYME [Suspect]
     Active Substance: ALGLUCOSIDASE ALFA
     Indication: GLYCOGEN STORAGE DISEASE TYPE II
     Route: 041
     Dates: start: 20130201, end: 20150327

REACTIONS (5)
  - Bronchospasm [Recovered/Resolved]
  - Urticaria [Recovered/Resolved]
  - Oxygen saturation decreased [Recovered/Resolved]
  - Tachycardia [Recovered/Resolved]
  - Anxiety [Recovered/Resolved]

NARRATIVE: CASE EVENT DATE: 20150424
